FAERS Safety Report 17547374 (Version 1)
Quarter: 2020Q1

REPORT INFORMATION
  Report Type: Spontaneous
  Country: US (occurrence: US)
  Receive Date: 20200317
  Receipt Date: 20200317
  Transmission Date: 20200409
  Serious: Yes (Life-Threatening, Hospitalization, Other)
  Sender: FDA-Public Use
  Company Number: US-EMCURE PHARMACEUTICALS LTD-2020-EPL-000267

PATIENT
  Age: 15 Year
  Sex: Male

DRUGS (2)
  1. VILAZODONE [Suspect]
     Active Substance: VILAZODONE
     Dosage: 30 DOSAGE FORM, TOTAL
     Route: 065
  2. BUPROPION HYDROCHLORIDE. [Suspect]
     Active Substance: BUPROPION HYDROCHLORIDE
     Dosage: 60 DOSAGE FORM, TOTAL
     Route: 065

REACTIONS (5)
  - Serotonin syndrome [Unknown]
  - Intentional overdose [Unknown]
  - Memory impairment [Recovering/Resolving]
  - Partial seizures [Unknown]
  - Cerebral infarction [Unknown]
